FAERS Safety Report 5799938-2 (Version None)
Quarter: 2008Q3

REPORT INFORMATION
  Report Type: 
  Country: None (occurrence: None)
  Receive Date: 20080703
  Receipt Date: 20080623
  Transmission Date: 20090109
  Serious: Yes (Hospitalization)
  Sender: FDA-Public Use
  Company Number: AT-ASTRAZENECA-2008PK01364

PATIENT
  Age: 28746 Day
  Sex: Female

DRUGS (3)
  1. ARIMIDEX [Suspect]
     Indication: BREAST CANCER
     Route: 048
     Dates: start: 20040501, end: 20070601
  2. ARIMIDEX [Suspect]
     Route: 048
     Dates: start: 20070614
  3. AUGMENTIN '125' [Concomitant]
     Indication: ASTHMA
     Route: 042

REACTIONS (1)
  - THROMBOSIS [None]
